FAERS Safety Report 6163737-2 (Version None)
Quarter: 2009Q2

REPORT INFORMATION
  Report Type: 
  Country: None (occurrence: None)
  Receive Date: 20090420
  Receipt Date: 20090420
  Transmission Date: 20091009
  Serious: Yes (Life-Threatening, Hospitalization, Other)
  Sender: FDA-Public Use
  Company Number: None

PATIENT
  Age: 46 Year
  Sex: Female
  Weight: 142.6 kg

DRUGS (13)
  1. KADIAN [Suspect]
     Indication: PAIN
     Dosage: 200MG BID PO
     Route: 048
     Dates: start: 20081111, end: 20081116
  2. METFORMIN HCL [Concomitant]
  3. IBUPROFEN [Concomitant]
  4. LYRICA [Concomitant]
  5. PREVACID [Concomitant]
  6. WELLBUTRIN XL [Concomitant]
  7. ACTOS [Concomitant]
  8. CYMBALTA [Concomitant]
  9. SINGULAIR [Concomitant]
  10. AMITRIPTYLINE HCL [Concomitant]
  11. LORATADINE [Concomitant]
  12. SPIRIVA [Concomitant]
  13. MICARDIS [Concomitant]

REACTIONS (8)
  - AGITATION [None]
  - ASPIRATION [None]
  - DEPRESSED LEVEL OF CONSCIOUSNESS [None]
  - HYPERCAPNIA [None]
  - HYPOTENSION [None]
  - PNEUMONIA [None]
  - POST PROCEDURAL COMPLICATION [None]
  - RESPIRATORY FAILURE [None]
